FAERS Safety Report 4990058-3 (Version None)
Quarter: 2006Q2

REPORT INFORMATION
  Report Type: 
  Country: None (occurrence: None)
  Receive Date: 20060427
  Receipt Date: 20060418
  Transmission Date: 20061013
  Serious: Yes (Other)
  Sender: FDA-Public Use
  Company Number: 2006048929

PATIENT
  Age: 73 Year
  Sex: Female
  Weight: 87 kg

DRUGS (2)
  1. LYRICA [Suspect]
     Indication: NEUROPATHY
     Dosage: 225 MG (1 D), ORAL
     Route: 048
     Dates: start: 20051101
  2. MIRTAZAPINE [Suspect]
     Indication: NEURALGIA
     Dates: start: 20051001

REACTIONS (1)
  - MACULAR DEGENERATION [None]
